FAERS Safety Report 4296449-0 (Version None)
Quarter: 2004Q1

REPORT INFORMATION
  Report Type: 
  Country: None (occurrence: None)
  Receive Date: 20040212
  Receipt Date: 20040127
  Transmission Date: 20041129
  Serious: Yes (Hospitalization)
  Sender: FDA-Public Use
  Company Number: WAES 0310USA00865

PATIENT
  Age: 52 Year
  Sex: Male

DRUGS (5)
  1. ZOCOR [Suspect]
     Indication: HYPERLIPIDAEMIA
     Dosage: 5 MG/DAILY
     Route: 048
     Dates: start: 20030322
  2. AMLODIPINE BESYLATE [Concomitant]
  3. BENZBROMARONE [Concomitant]
  4. TEMOCAPRIL HYDROCHLORIDE [Concomitant]
  5. VOGLIBOSE [Concomitant]

REACTIONS (1)
  - ACUTE MYOCARDIAL INFARCTION [None]
